FAERS Safety Report 5208714-0 (Version None)
Quarter: 2007Q1

REPORT INFORMATION
  Report Type: 
  Country: None (occurrence: None)
  Receive Date: 20070116
  Receipt Date: 20070105
  Transmission Date: 20070707
  Serious: Yes (Hospitalization, Other)
  Sender: FDA-Public Use
  Company Number: PHRM2007FR00465

PATIENT
  Age: 75 Year
  Sex: Female

DRUGS (6)
  1. TEGRETOL [Suspect]
     Dosage: 100 MG, QD
     Route: 048
     Dates: end: 20060618
  2. RISPERDAL [Suspect]
     Dosage: 0.5 MG, QD
     Route: 048
     Dates: start: 20060616, end: 20060618
  3. DUPHALAC /NET/ [Concomitant]
     Dosage: 2 DF/DAY
     Route: 048
  4. EUPRESSYL [Concomitant]
     Dosage: 60 MG/DAY
     Route: 048
  5. NICARDIPINE HCL [Concomitant]
     Dosage: 100 MG/DAY
     Route: 048
  6. NEUROLITHIUM /FRA/ [Concomitant]
     Dosage: 2 G, QD
     Route: 048

REACTIONS (12)
  - APHASIA [None]
  - BRONCHIAL OBSTRUCTION [None]
  - DEPRESSED LEVEL OF CONSCIOUSNESS [None]
  - DYSPHAGIA [None]
  - ELECTROENCEPHALOGRAM ABNORMAL [None]
  - FACIAL PALSY [None]
  - GLASGOW COMA SCALE ABNORMAL [None]
  - HYPOREFLEXIA [None]
  - HYPOTHERMIA [None]
  - OEDEMA PERIPHERAL [None]
  - SOMNOLENCE [None]
  - TRANSIENT ISCHAEMIC ATTACK [None]
